FAERS Safety Report 12288360 (Version 1)
Quarter: 2016Q2

REPORT INFORMATION
  Report Type: Spontaneous
  Country: US (occurrence: US)
  Receive Date: 20160420
  Receipt Date: 20160420
  Transmission Date: 20160815
  Serious: No
  Sender: FDA-Public Use
  Company Number: US-ASTELLAS-2015US011130

PATIENT
  Sex: Male

DRUGS (1)
  1. PROTOPIC [Suspect]
     Active Substance: TACROLIMUS
     Indication: SKIN IRRITATION
     Dosage: UNK, ONCE DAILY
     Route: 061
     Dates: start: 201502

REACTIONS (2)
  - Incorrect product storage [Unknown]
  - Product use issue [Unknown]

NARRATIVE: CASE EVENT DATE: 201502
